FAERS Safety Report 14161535 (Version 1)
Quarter: 2017Q4

REPORT INFORMATION
  Report Type: Spontaneous
  Country: GB (occurrence: GB)
  Receive Date: 20171106
  Receipt Date: 20171106
  Transmission Date: 20180321
  Serious: Yes (Other)
  Sender: FDA-Public Use
  Company Number: GB-JNJFOC-20171103190

PATIENT
  Age: 60 Year
  Sex: Female

DRUGS (9)
  1. CETIRIZINE [Concomitant]
     Active Substance: CETIRIZINE HYDROCHLORIDE
     Route: 065
  2. SHORTEC [Concomitant]
     Route: 065
  3. BENEPALI [Concomitant]
     Active Substance: ETANERCEPT
     Route: 065
  4. PARACETAMOL [Concomitant]
     Active Substance: ACETAMINOPHEN
     Route: 065
  5. DILTIAZEM. [Concomitant]
     Active Substance: DILTIAZEM
     Route: 065
  6. STELARA [Suspect]
     Active Substance: USTEKINUMAB
     Indication: PSORIATIC ARTHROPATHY
     Route: 058
     Dates: start: 20171006, end: 20171017
  7. LODINE [Concomitant]
     Active Substance: ETODOLAC
     Route: 065
  8. OMEPRAZOLE. [Concomitant]
     Active Substance: OMEPRAZOLE
     Route: 065
  9. CITALOPRAM [Concomitant]
     Active Substance: CITALOPRAM HYDROBROMIDE
     Route: 065

REACTIONS (5)
  - Muscle spasms [Recovering/Resolving]
  - Malaise [Recovering/Resolving]
  - Headache [Not Recovered/Not Resolved]
  - Nausea [Recovered/Resolved]
  - Dizziness [Recovering/Resolving]

NARRATIVE: CASE EVENT DATE: 20171006
